FAERS Safety Report 9177057 (Version 1)
Quarter: 2013Q1

REPORT INFORMATION
  Report Type: Spontaneous
  Country: US (occurrence: None)
  Receive Date: 20130320
  Receipt Date: 20130320
  Transmission Date: 20140127
  Serious: Yes (Hospitalization, Disabling, Other)
  Sender: FDA-Public Use
  Company Number: None

PATIENT
  Age: 56 Year
  Sex: Female
  Weight: 97.52 kg

DRUGS (1)
  1. ZOLPIDEM [Suspect]
     Dosage: 5-10 MG DAILY, BEDTIME PO

REACTIONS (5)
  - Somnambulism [None]
  - Road traffic accident [None]
  - Crime [None]
  - Homeless [None]
  - Abnormal sleep-related event [None]
